FAERS Safety Report 12314915 (Version 1)
Quarter: 2016Q2

REPORT INFORMATION
  Report Type: Spontaneous
  Country: US (occurrence: US)
  Receive Date: 20160428
  Receipt Date: 20160428
  Transmission Date: 20160815
  Serious: No
  Sender: FDA-Public Use
  Company Number: US-ENDO PHARMACEUTICALS INC.-2015-004011

PATIENT
  Age: 42 Year
  Sex: Female
  Weight: 71.28 kg

DRUGS (2)
  1. PROPRANOLOL HCL TABLETS 10MG [Suspect]
     Active Substance: PROPRANOLOL HYDROCHLORIDE
     Indication: AUTONOMIC NERVOUS SYSTEM IMBALANCE
  2. PROPRANOLOL HCL TABLETS 10MG [Suspect]
     Active Substance: PROPRANOLOL HYDROCHLORIDE
     Indication: POSTURAL ORTHOSTATIC TACHYCARDIA SYNDROME
     Route: 065
     Dates: start: 20151014, end: 20151014

REACTIONS (6)
  - Muscular weakness [Recovered/Resolved]
  - Respiratory distress [Recovered/Resolved]
  - Asthenia [Recovered/Resolved]
  - Unevaluable event [Recovered/Resolved]
  - Off label use [Recovered/Resolved]
  - Dysphagia [Recovered/Resolved]

NARRATIVE: CASE EVENT DATE: 20151014
